FAERS Safety Report 10724976 (Version 3)
Quarter: 2015Q4

REPORT INFORMATION
  Report Type: Spontaneous
  Country: DK (occurrence: DK)
  Receive Date: 20150120
  Receipt Date: 20151229
  Transmission Date: 20160304
  Serious: Yes (Hospitalization, Disabling)
  Sender: FDA-Public Use
  Company Number: ALCN2015DK000670

PATIENT
  Age: 70 Year
  Sex: Female
  Weight: 85 kg

DRUGS (14)
  1. KETOGAN [Concomitant]
     Active Substance: KETOBEMIDONE HYDROCHLORIDE
     Indication: NEURALGIA
     Dosage: UNK
     Route: 065
     Dates: start: 19940101
  2. DEXAMETHASONE. [Suspect]
     Active Substance: DEXAMETHASONE
     Indication: PRODUCT USED FOR UNKNOWN INDICATION
     Dosage: UNK
     Route: 065
     Dates: start: 2013, end: 2013
  3. METEX [Suspect]
     Active Substance: METFORMIN HYDROCHLORIDE
     Dosage: 25 MG, QW
     Route: 065
     Dates: start: 20131030
  4. PREDNISOLON [Concomitant]
     Active Substance: PREDNISOLONE
     Indication: RHEUMATOID ARTHRITIS
     Dosage: UNK
     Route: 065
     Dates: start: 201204
  5. ANAFRANIL [Concomitant]
     Active Substance: CLOMIPRAMINE HYDROCHLORIDE
     Indication: NEURALGIA
     Dosage: UNK
     Route: 065
     Dates: start: 19940101
  6. METEX [Suspect]
     Active Substance: METFORMIN HYDROCHLORIDE
     Indication: ARTHRITIS
     Dosage: 10 MG, QW
     Route: 065
     Dates: start: 201204, end: 201306
  7. SAROTEN [Concomitant]
     Active Substance: AMITRIPTYLINE
     Indication: NEURALGIA
     Dosage: UNK
     Route: 065
     Dates: start: 19940101
  8. PINEX                                   /DEN/ [Concomitant]
     Indication: NEURALGIA
     Dosage: UNK
     Route: 065
     Dates: start: 19940101
  9. RIVOTRIL [Concomitant]
     Active Substance: CLONAZEPAM
     Indication: NEURALGIA
     Dosage: UNK
     Route: 065
     Dates: start: 19940101
  10. TILCOTIL [Concomitant]
     Active Substance: TENOXICAM
     Indication: NEURALGIA
     Dosage: UNK
     Route: 065
     Dates: start: 19940101
  11. CALCIUM [Concomitant]
     Active Substance: CALCIUM
     Indication: NEURALGIA
     Dosage: UNK
     Route: 065
     Dates: start: 19940101
  12. CHLORZOXAZONE. [Concomitant]
     Active Substance: CHLORZOXAZONE
     Indication: NEURALGIA
     Dosage: UNK
     Route: 065
     Dates: start: 19940101
  13. CONTALGIN [Concomitant]
     Active Substance: MORPHINE SULFATE
     Indication: NEURALGIA
     Dosage: UNK
     Route: 065
     Dates: start: 19940101
  14. VITAMIN D [Concomitant]
     Active Substance: CHOLECALCIFEROL
     Indication: OSTEOPOROSIS PROPHYLAXIS
     Dosage: UNK
     Route: 065
     Dates: start: 20120101

REACTIONS (9)
  - Pulmonary fibrosis [Not Recovered/Not Resolved]
  - Hypoxia [Unknown]
  - Pneumonia [Unknown]
  - Alveolitis allergic [Unknown]
  - Oxygen consumption decreased [Unknown]
  - Dyspnoea [Unknown]
  - General physical health deterioration [Unknown]
  - Pulmonary function test decreased [Not Recovered/Not Resolved]
  - Interstitial lung disease [Unknown]

NARRATIVE: CASE EVENT DATE: 20130515
